FAERS Safety Report 10346121 (Version 1)
Quarter: 2014Q3

REPORT INFORMATION
  Report Type: Spontaneous
  Country: FR (occurrence: FR)
  Receive Date: 20140728
  Receipt Date: 20140728
  Transmission Date: 20150326
  Serious: Yes (Other)
  Sender: FDA-Public Use
  Company Number: FR-PFIZER INC-2014203413

PATIENT
  Age: 63 Year
  Sex: Male

DRUGS (2)
  1. CEFTRIAXONE PANPHARMA [Interacting]
     Active Substance: CEFTRIAXONE
     Indication: BRAIN ABSCESS
     Dosage: 2 G, DAILY
     Route: 042
     Dates: start: 20140605, end: 20140613
  2. CLINDAMYCIN [Suspect]
     Active Substance: CLINDAMYCIN\CLINDAMYCIN PHOSPHATE
     Indication: BRAIN ABSCESS
     Dosage: 600 MG, 3X/DAY
     Route: 048
     Dates: start: 20140605, end: 20140613

REACTIONS (2)
  - Drug interaction [Recovered/Resolved]
  - Vascular purpura [Recovered/Resolved]

NARRATIVE: CASE EVENT DATE: 20140613
